FAERS Safety Report 9495943 (Version 1)
Quarter: 2013Q3

REPORT INFORMATION
  Report Type: Spontaneous
  Country: US (occurrence: US)
  Receive Date: 20130904
  Receipt Date: 20130904
  Transmission Date: 20140515
  Serious: Yes (Other)
  Sender: FDA-Public Use
  Company Number: US-PAR PHARMACEUTICAL, INC-2013SCPR006140

PATIENT
  Sex: 0

DRUGS (4)
  1. VENLAFAXINE HYDROCHLORIDE [Suspect]
     Indication: CATAPLEXY
     Dosage: 75 MG, / DAY
     Route: 065
  2. VENLAFAXINE HYDROCHLORIDE [Suspect]
     Indication: NARCOLEPSY
     Dosage: 150 MG, / DAY
     Route: 065
  3. FLUOXETINE [Suspect]
     Indication: CATAPLEXY
     Dosage: 20 MG, UNKNOWN
     Route: 065
  4. FLUOXETINE [Suspect]
     Indication: NARCOLEPSY

REACTIONS (5)
  - Cataplexy [Recovered/Resolved]
  - Hypertension [Recovered/Resolved]
  - Hallucination [Unknown]
  - Gastroenteritis [Unknown]
  - Vomiting [Unknown]
